FAERS Safety Report 25083979 (Version 2)
Quarter: 2025Q1

REPORT INFORMATION
  Report Type: Spontaneous
  Country: DE (occurrence: DE)
  Receive Date: 20250317
  Receipt Date: 20250325
  Transmission Date: 20250409
  Serious: No
  Sender: TAKEDA
  Company Number: DE-TAKEDA-2025TUS026248

PATIENT
  Age: 49 Year
  Sex: Female

DRUGS (1)
  1. LISDEXAMFETAMINE DIMESYLATE [Suspect]
     Active Substance: LISDEXAMFETAMINE DIMESYLATE
     Indication: Attention deficit hyperactivity disorder

REACTIONS (9)
  - Chills [Recovered/Resolved]
  - Muscle tightness [Unknown]
  - Saliva altered [Unknown]
  - Breath odour [Unknown]
  - Malaise [Unknown]
  - Inappropriate schedule of product administration [Unknown]
  - Nasopharyngitis [Unknown]
  - Bruxism [Recovered/Resolved]
  - Dry mouth [Unknown]
